FAERS Safety Report 16814585 (Version 1)
Quarter: 2019Q3

REPORT INFORMATION
  Report Type: Spontaneous
  Country: US (occurrence: US)
  Receive Date: 20190725
  Receipt Date: 20190725
  Transmission Date: 20191005
  Serious: No
  Sender: FDA-Public Use
  Company Number: None

PATIENT
  Age: 59 Year
  Sex: Male
  Weight: 69 kg

DRUGS (1)
  1. LURASIDONE [Suspect]
     Active Substance: LURASIDONE
     Indication: BIPOLAR I DISORDER
     Dosage: ?          OTHER FREQUENCY:AM;?
     Route: 048
     Dates: start: 20190506, end: 20190523

REACTIONS (2)
  - Restlessness [None]
  - Insomnia [None]

NARRATIVE: CASE EVENT DATE: 20190523
